FAERS Safety Report 15287932 (Version 1)
Quarter: 2018Q3

REPORT INFORMATION
  Report Type: Spontaneous
  Country: US (occurrence: US)
  Receive Date: 20180817
  Receipt Date: 20180817
  Transmission Date: 20181010
  Serious: No
  Sender: FDA-Public Use
  Company Number: US-PFIZER INC-2018325268

PATIENT
  Age: 49 Year
  Sex: Female
  Weight: 58.5 kg

DRUGS (4)
  1. MENEST [Suspect]
     Active Substance: ESTROGENS, ESTERIFIED
     Indication: HOT FLUSH
     Dosage: 1.25 MG, DAILY
     Route: 048
     Dates: start: 2008
  2. MENEST [Suspect]
     Active Substance: ESTROGENS, ESTERIFIED
     Dosage: UNK
     Dates: end: 20180807
  3. MENEST [Suspect]
     Active Substance: ESTROGENS, ESTERIFIED
     Dosage: UNK (CUTTING THE 1.25MG IN HALF)
  4. NOVOLOG [Concomitant]
     Active Substance: INSULIN ASPART
     Indication: TYPE 1 DIABETES MELLITUS
     Dosage: 16 UNITS THROUGH PUMP EVERY DAY
     Dates: start: 2017

REACTIONS (5)
  - Intentional product use issue [Unknown]
  - Drug dispensing error [Unknown]
  - Insomnia [Recovering/Resolving]
  - Drug dose omission [Not Recovered/Not Resolved]
  - Hot flush [Recovering/Resolving]

NARRATIVE: CASE EVENT DATE: 2008
